FAERS Safety Report 4566761-6 (Version None)
Quarter: 2005Q1

REPORT INFORMATION
  Report Type: 
  Country: None (occurrence: None)
  Receive Date: 20050201
  Receipt Date: 20011002
  Transmission Date: 20050727
  Serious: Yes (Other)
  Sender: FDA-Public Use
  Company Number: US-BRISTOL-MYERS SQUIBB COMPANY-11471232

PATIENT
  Sex: Male

DRUGS (22)
  1. STADOL [Suspect]
     Dosage: DOSING: 10MG/ML
     Route: 045
  2. NASALCROM [Concomitant]
     Route: 045
  3. LORTAB [Concomitant]
  4. HISMANAL [Concomitant]
  5. HYDROCODONE + ACETAMINOPHEN [Concomitant]
  6. LORCET-HD [Concomitant]
     Dosage: DOSING: 7.5-650
  7. CYCLOBENZAPRINE [Concomitant]
  8. AUGMENTIN '250' [Concomitant]
  9. ACETAMINOPHEN AND CODEINE PHOSPHATE [Concomitant]
  10. FIORINAL W/CODEINE [Concomitant]
  11. OXYCONTIN [Concomitant]
  12. VICOPROFEN [Concomitant]
  13. VIOXX [Concomitant]
  14. PREDNISONE [Concomitant]
  15. ALBUTEROL [Concomitant]
     Route: 055
  16. PERCOCET [Concomitant]
     Dosage: DOSING: 10-325MG
  17. DOXYCYCLINE [Concomitant]
  18. ZOLOFT [Concomitant]
  19. OXYCODONE HCL + ACETAMINOPHEN [Concomitant]
  20. ENDOCET [Concomitant]
  21. AMBIEN [Concomitant]
  22. DIAZEPAM [Concomitant]

REACTIONS (1)
  - DEPENDENCE [None]
